FAERS Safety Report 20782715 (Version 1)
Quarter: 2022Q2

REPORT INFORMATION
  Report Type: Spontaneous
  Country: IN (occurrence: IN)
  Receive Date: 20220504
  Receipt Date: 20220504
  Transmission Date: 20220721
  Serious: Yes (Hospitalization, Other)
  Sender: FDA-Public Use
  Company Number: None

PATIENT
  Age: 40 Year
  Sex: Male

DRUGS (6)
  1. METHOTREXATE [Suspect]
     Active Substance: METHOTREXATE
     Indication: Arthritis reactive
     Dosage: 15 MILLIGRAM
     Route: 065
  2. DEXAMETHASONE [Suspect]
     Active Substance: DEXAMETHASONE
     Indication: Arthritis reactive
     Dosage: 300 MILLIGRAM, MONTHLY
     Route: 065
  3. TRAMADOL [Suspect]
     Active Substance: TRAMADOL
     Indication: Arthritis reactive
     Dosage: UNK
     Route: 065
  4. DOXYCYCLINE [Suspect]
     Active Substance: DOXYCYCLINE
     Indication: Arthritis reactive
     Dosage: 100 MILLIGRAM, BID
     Route: 065
  5. PREDNISOLONE [Suspect]
     Active Substance: PREDNISOLONE
     Indication: Arthritis reactive
     Dosage: UNK, QD, AS A PULSE THERAPY
     Route: 048
  6. ADALIMUMAB [Concomitant]
     Active Substance: ADALIMUMAB
     Indication: Arthritis reactive
     Dosage: TWO DOSES
     Route: 065

REACTIONS (3)
  - Treatment failure [Unknown]
  - Cataract [Unknown]
  - Type 2 diabetes mellitus [Unknown]
